FAERS Safety Report 13495987 (Version 2)
Quarter: 2017Q2

REPORT INFORMATION
  Report Type: Spontaneous
  Country: NO (occurrence: NO)
  Receive Date: 20170428
  Receipt Date: 20170630
  Transmission Date: 20170830
  Serious: Yes (Hospitalization, Other)
  Sender: FDA-Public Use
  Company Number: NO-PFIZER INC-2017180145

PATIENT
  Age: 77 Year
  Sex: Female

DRUGS (8)
  1. ALENDRONIC ACID [Concomitant]
     Active Substance: ALENDRONIC ACID
     Dosage: 70 MG, WEEKLY
     Route: 048
     Dates: end: 20170217
  2. METOPROLOL TARTRATE. [Concomitant]
     Active Substance: METOPROLOL TARTRATE
     Dosage: 25 MG, 1X/DAY
     Route: 048
  3. ALBYL-E [Concomitant]
     Active Substance: ASPIRIN\MAGNESIUM OXIDE
     Dosage: 75 MG, 1X/DAY
     Route: 048
  4. ATOZET [Suspect]
     Active Substance: ATORVASTATIN CALCIUM\EZETIMIBE
     Indication: ACUTE MYOCARDIAL INFARCTION
     Dosage: 10 MG/10 MG, 1X/DAY
     Route: 048
     Dates: start: 20170208, end: 20170303
  5. CENTYL MED KALIUMKLORID [Concomitant]
     Active Substance: BENDROFLUMETHIAZIDE\POTASSIUM CHLORIDE
     Indication: HYPERTENSION
     Dosage: 2.5 MG/573 MG, 1X/DAY
     Route: 048
  6. BRILIQUE [Concomitant]
     Active Substance: TICAGRELOR
     Dosage: 90 MG, 2X/DAY
     Route: 048
  7. LIPITOR [Suspect]
     Active Substance: ATORVASTATIN CALCIUM
     Indication: ACUTE MYOCARDIAL INFARCTION
     Dosage: 80 MG, 1X/DAY
     Route: 048
     Dates: start: 20161223, end: 20170208
  8. CALCIGRAN FORTE [Concomitant]
     Dosage: 1000 MG/800 IE, 1X/DAY
     Route: 048

REACTIONS (9)
  - Epistaxis [Unknown]
  - Contusion [Unknown]
  - Haemoglobin decreased [Recovering/Resolving]
  - Myalgia [Unknown]
  - Dizziness [Unknown]
  - Hepatitis [Recovered/Resolved]
  - Headache [Unknown]
  - Influenza [Recovered/Resolved]
  - Blood potassium decreased [Unknown]

NARRATIVE: CASE EVENT DATE: 201701
